FAERS Safety Report 12435008 (Version 1)
Quarter: 2016Q2

REPORT INFORMATION
  Report Type: Spontaneous
  Country: US (occurrence: US)
  Receive Date: 20160603
  Receipt Date: 20160603
  Transmission Date: 20160815
  Serious: No
  Sender: FDA-Public Use
  Company Number: US-ROCHE-1356788

PATIENT
  Sex: Male

DRUGS (4)
  1. XELODA [Suspect]
     Active Substance: CAPECITABINE
     Dosage: 3 TABLETS ?2 WEEKS ON, 1 WEEK OFF
     Route: 048
     Dates: start: 201401
  2. XELODA [Suspect]
     Active Substance: CAPECITABINE
     Dosage: DOSE INCREASED
     Route: 048
     Dates: start: 20140125
  3. XELODA [Suspect]
     Active Substance: CAPECITABINE
     Indication: NEOPLASM MALIGNANT
     Dosage: TAKE 2 TABS 14 DAYS ON, 7 DAYS OFF?500MG; 3 BID,
     Route: 048
     Dates: start: 20140124
  4. XELODA [Suspect]
     Active Substance: CAPECITABINE
     Dosage: TWICE A DAY 25 DAYS THEN OFF FOR 7 DAYS, 5 CYCLES
     Route: 048
     Dates: start: 20150903

REACTIONS (8)
  - Diarrhoea [Unknown]
  - Musculoskeletal disorder [Unknown]
  - Gastric disorder [Unknown]
  - Fatigue [Unknown]
  - Oedema [Unknown]
  - Fatigue [Not Recovered/Not Resolved]
  - Hot flush [Not Recovered/Not Resolved]
  - Feeling abnormal [Unknown]
